FAERS Safety Report 7007102-4 (Version None)
Quarter: 2010Q3

REPORT INFORMATION
  Report Type: 
  Country: None (occurrence: None)
  Receive Date: 20100922
  Receipt Date: 20100917
  Transmission Date: 20110219
  Serious: Yes (Other)
  Sender: FDA-Public Use
  Company Number: PHBS2010DE00631

PATIENT
  Sex: Male

DRUGS (5)
  1. EXTAVIA [Suspect]
     Indication: MULTIPLE SCLEROSIS
     Dosage: 1 ML, QOD
     Route: 058
     Dates: start: 20090626
  2. BACLOFEN [Concomitant]
     Indication: MUSCLE SPASTICITY
  3. CARBAMAZEPINE [Concomitant]
  4. TETRAZEPAM [Concomitant]
     Indication: MUSCLE SPASTICITY
     Dosage: 50 MG/DAY
     Route: 048
     Dates: start: 20100503
  5. TOLPERISONE [Concomitant]

REACTIONS (1)
  - FACIAL PAIN [None]
